FAERS Safety Report 8267504-5 (Version None)
Quarter: 2012Q2

REPORT INFORMATION
  Report Type: 
  Country: None (occurrence: None)
  Receive Date: 20120409
  Receipt Date: 20120329
  Transmission Date: 20120825
  Serious: Yes (Other)
  Sender: FDA-Public Use
  Company Number: CA-JNJFOC-20120315099

PATIENT
  Sex: Male
  Weight: 67.9 kg

DRUGS (13)
  1. REMICADE [Suspect]
     Indication: CROHN'S DISEASE
     Dates: start: 20090101
  2. CITALOPRAM HYDROBROMIDE [Concomitant]
  3. MULTI-VITAMINS [Concomitant]
  4. AZATHIOPRINE [Concomitant]
  5. METFORMIN HCL [Concomitant]
  6. ETODOLAC [Concomitant]
  7. LAMOTRGINE [Concomitant]
  8. VITAMIN D [Concomitant]
  9. VITAMIN B-12 [Concomitant]
  10. SEROQUEL [Concomitant]
  11. INVEGA [Concomitant]
  12. FOLIC ACID [Concomitant]
  13. RISPERIDONE [Concomitant]

REACTIONS (1)
  - EYE INJURY [None]
